FAERS Safety Report 12660400 (Version 1)
Quarter: 2016Q3

REPORT INFORMATION
  Report Type: Spontaneous
  Country: US (occurrence: US)
  Receive Date: 20160817
  Receipt Date: 20160817
  Transmission Date: 20161109
  Serious: Yes (Other)
  Sender: FDA-Public Use
  Company Number: US-FRESENIUS KABI-FK201605412

PATIENT
  Age: 65 Year
  Sex: Male

DRUGS (2)
  1. CISPLATIN (MANUFACTURER UNKNOWN) [Suspect]
     Active Substance: CISPLATIN
     Indication: ANAPLASTIC THYROID CANCER
     Route: 065
  2. PACLITAXEL (MANUFACTURER UNKNOWN) [Suspect]
     Active Substance: PACLITAXEL
     Indication: ANAPLASTIC THYROID CANCER
     Route: 065

REACTIONS (3)
  - Fatigue [Unknown]
  - Weight decreased [Unknown]
  - Dysphagia [Unknown]
